FAERS Safety Report 9149187 (Version 1)
Quarter: 2013Q1

REPORT INFORMATION
  Report Type: Spontaneous
  Country: US (occurrence: US)
  Receive Date: 20130308
  Receipt Date: 20130308
  Transmission Date: 20140127
  Serious: Yes (Other)
  Sender: FDA-Public Use
  Company Number: US-BRISTOL-MYERS SQUIBB COMPANY-17439928

PATIENT
  Age: 84 Year
  Sex: Female
  Weight: 64.85 kg

DRUGS (11)
  1. ELIQUIS [Suspect]
     Dates: start: 20130226
  2. ALPRAZOLAM [Concomitant]
     Dosage: BID
  3. ASPIRIN [Concomitant]
  4. FENTANYL PATCH [Concomitant]
  5. GABAPENTIN [Concomitant]
     Dosage: 1 QAM AND 2 QPM
  6. HYDRALAZINE [Concomitant]
  7. LOSARTAN [Concomitant]
  8. METFORMIN [Concomitant]
     Dosage: QAM
  9. METOPROLOL [Concomitant]
  10. PRAVASTATIN SODIUM [Concomitant]
     Dosage: QHS
  11. SPIRONOLACTONE [Concomitant]
     Dosage: QAM

REACTIONS (5)
  - Headache [Recovering/Resolving]
  - Blood pressure increased [Unknown]
  - Blindness [Unknown]
  - Local swelling [Recovered/Resolved]
  - Throat tightness [Unknown]
